FAERS Safety Report 20633219 (Version 1)
Quarter: 2022Q1

REPORT INFORMATION
  Report Type: Spontaneous
  Country: US (occurrence: US)
  Receive Date: 20220324
  Receipt Date: 20220324
  Transmission Date: 20220423
  Serious: Yes (Other)
  Sender: FDA-Public Use
  Company Number: US-NOVARTISTESTPH-NVSC2022US065772

PATIENT
  Sex: Female

DRUGS (2)
  1. ASCIMINIB [Suspect]
     Active Substance: ASCIMINIB
     Indication: Chronic myeloid leukaemia
     Dosage: 40 MG, BID
     Route: 048
     Dates: start: 20220215
  2. ASCIMINIB [Suspect]
     Active Substance: ASCIMINIB
     Dosage: 40 MG, QD
     Route: 048
     Dates: end: 20220316

REACTIONS (2)
  - Amylase increased [Unknown]
  - Lipase increased [Unknown]

NARRATIVE: CASE EVENT DATE: 20220201
